FAERS Safety Report 21037875 (Version 2)
Quarter: 2022Q3

REPORT INFORMATION
  Report Type: Spontaneous
  Country: US (occurrence: US)
  Receive Date: 20220704
  Receipt Date: 20220802
  Transmission Date: 20221027
  Serious: Yes (Other)
  Sender: FDA-Public Use
  Company Number: US-drreddys-LIT/USA/22/0151754

PATIENT
  Age: 3 Decade
  Sex: Male

DRUGS (9)
  1. LORAZEPAM [Suspect]
     Active Substance: LORAZEPAM
     Indication: Catatonia
  2. LORAZEPAM [Suspect]
     Active Substance: LORAZEPAM
     Dosage: GRADUALLY INCREASED TO
  3. CLOZAPINE [Suspect]
     Active Substance: CLOZAPINE
     Indication: Catatonia
  4. CLOZAPINE [Suspect]
     Active Substance: CLOZAPINE
     Dosage: GRADUALLY INCREASED TO
  5. CLOZAPINE [Suspect]
     Active Substance: CLOZAPINE
     Dosage: 275MG EVERY MORNING AND 300MG EVERY EVENING
  6. CLOZAPINE [Suspect]
     Active Substance: CLOZAPINE
     Dosage: MAXIMUM DOSE
  7. RISPERIDONE [Concomitant]
     Active Substance: RISPERIDONE
     Indication: Aggression
  8. RISPERIDONE [Concomitant]
     Active Substance: RISPERIDONE
     Indication: Irritability
  9. MIRTAZAPINE [Concomitant]
     Active Substance: MIRTAZAPINE
     Indication: Major depression

REACTIONS (1)
  - Sedation [Unknown]
